FAERS Safety Report 19561734 (Version 1)
Quarter: 2021Q3

REPORT INFORMATION
  Report Type: Spontaneous
  Country: US (occurrence: US)
  Receive Date: 20210716
  Receipt Date: 20210716
  Transmission Date: 20211014
  Serious: Yes (Other)
  Sender: FDA-Public Use
  Company Number: None

PATIENT
  Age: 55 Year
  Sex: Female
  Weight: 60.3 kg

DRUGS (4)
  1. FISH OIL [Concomitant]
     Active Substance: FISH OIL
  2. NEUTROGENA BEACH DEF WATER PLUS SUN PROT BR^D SPECT SPF 70 (AV\HOM\OCTI\OCTO\OX) [Suspect]
     Active Substance: AVOBENZONE\HOMOSALATE\OCTISALATE\OCTOCRYLENE\OXYBENZONE
     Dosage: ?          OTHER STRENGTH:SPRAY;QUANTITY:1 HOURLY;OTHER FREQUENCY:SPRAY HOURLY;?
     Route: 061
     Dates: start: 20210630, end: 20210704
  3. MAGNESIUM [Concomitant]
     Active Substance: MAGNESIUM
  4. HYDROCHROLOTHIZIDE [Concomitant]

REACTIONS (8)
  - Dizziness [None]
  - Nausea [None]
  - Heart rate increased [None]
  - Asthenia [None]
  - Headache [None]
  - Pallor [None]
  - Vomiting [None]
  - Abdominal pain upper [None]

NARRATIVE: CASE EVENT DATE: 20210704
